FAERS Safety Report 11212007 (Version 1)
Quarter: 2015Q2

REPORT INFORMATION
  Report Type: Spontaneous
  Country: US (occurrence: None)
  Receive Date: 20150622
  Receipt Date: 20150622
  Transmission Date: 20150821
  Serious: Yes (Hospitalization)
  Sender: FDA-Public Use
  Company Number: None

PATIENT
  Age: 64 Year
  Sex: Male

DRUGS (2)
  1. VANCOMYCIN [Suspect]
     Active Substance: VANCOMYCIN
     Indication: DIABETIC FOOT INFECTION
     Route: 042
     Dates: start: 20150605, end: 20150608
  2. PIPERACILLIN/TAZOBACTAM [Suspect]
     Active Substance: PIPERACILLIN SODIUM\TAZOBACTAM SODIUM
     Indication: DIABETIC FOOT INFECTION
     Route: 042
     Dates: start: 20150605, end: 20150608

REACTIONS (7)
  - Pruritus [None]
  - Haemodialysis [None]
  - Erythema [None]
  - Rash [None]
  - Blood creatinine increased [None]
  - Rash morbilliform [None]
  - Blood urea increased [None]

NARRATIVE: CASE EVENT DATE: 20150608
